FAERS Safety Report 24935124 (Version 1)
Quarter: 2025Q1

REPORT INFORMATION
  Report Type: Spontaneous
  Country: BR (occurrence: BR)
  Receive Date: 20250206
  Receipt Date: 20250206
  Transmission Date: 20250408
  Serious: Yes (Death)
  Sender: BOEHRINGER INGELHEIM
  Company Number: BR-BoehringerIngelheim-2025-BI-006794

PATIENT
  Sex: Female

DRUGS (1)
  1. OFEV [Suspect]
     Active Substance: NINTEDANIB
     Indication: Interstitial lung disease

REACTIONS (7)
  - Sepsis [Fatal]
  - Acute respiratory failure [Fatal]
  - Respiratory tract infection [Fatal]
  - Influenza [Fatal]
  - Hypertension [Fatal]
  - Diabetes mellitus [Fatal]
  - Pulmonary fibrosis [Fatal]
